FAERS Safety Report 11781760 (Version 1)
Quarter: 2015Q4

REPORT INFORMATION
  Report Type: Spontaneous
  Country: US (occurrence: US)
  Receive Date: 20151126
  Receipt Date: 20151126
  Transmission Date: 20160305
  Serious: Yes (Other)
  Sender: FDA-Public Use
  Company Number: US-HORIZON-ACT-0197-2015

PATIENT
  Age: 17 Year
  Sex: Male

DRUGS (1)
  1. ACTIMMUNE [Suspect]
     Active Substance: INTERFERON GAMMA-1B
     Indication: CHRONIC GRANULOMATOUS DISEASE
     Dosage: 0.5 ML THREE TIMES WEEKLY
     Dates: start: 201404

REACTIONS (3)
  - Therapy cessation [Unknown]
  - Depression [Unknown]
  - Liver abscess [Unknown]
